FAERS Safety Report 5009022-3 (Version None)
Quarter: 2006Q2

REPORT INFORMATION
  Report Type: 
  Country: None (occurrence: None)
  Receive Date: 20060519
  Receipt Date: 20060508
  Transmission Date: 20061013
  Serious: Yes (Hospitalization, Other)
  Sender: FDA-Public Use
  Company Number: US-2005-019366

PATIENT
  Age: 31 Year
  Sex: Female
  Weight: 86.2 kg

DRUGS (1)
  1. MIRENA [Suspect]
     Indication: CONTRACEPTION
     Dosage: 20 UG/DAY, CONT, INTRA-UTERINE
     Route: 015
     Dates: start: 20031003

REACTIONS (5)
  - IUD MIGRATION [None]
  - MEDICAL DEVICE COMPLICATION [None]
  - ROAD TRAFFIC ACCIDENT [None]
  - UTERINE PERFORATION [None]
  - VENTRICULAR FIBRILLATION [None]
